FAERS Safety Report 23213939 (Version 1)
Quarter: 2023Q4

REPORT INFORMATION
  Report Type: Report from Study
  Country: US (occurrence: US)
  Receive Date: 20231121
  Receipt Date: 20231121
  Transmission Date: 20240109
  Serious: Yes (Hospitalization)
  Sender: FDA-Public Use
  Company Number: US-Eisai-EC-2023-150926

PATIENT
  Age: 80 Year
  Sex: Female

DRUGS (8)
  1. LENVIMA [Suspect]
     Active Substance: LENVATINIB
     Indication: Hepatocellular carcinoma
     Route: 048
     Dates: end: 202310
  2. COLACE [Concomitant]
     Active Substance: DOCUSATE SODIUM
     Dosage: FREQUENCY UNKNOWN
  3. ELIQUIS [Concomitant]
     Active Substance: APIXABAN
     Dosage: FREQUENCY UNKNOWN
  4. GABAPENTIN [Concomitant]
     Active Substance: GABAPENTIN
     Dosage: FREQUENCY UNKNOWN
  5. LOSARTAN POTASSIUM [Concomitant]
     Active Substance: LOSARTAN POTASSIUM
     Dosage: FREQUENCY UNKNOWN
  6. METFORMIN [Concomitant]
     Active Substance: METFORMIN HYDROCHLORIDE
     Dosage: FREQUENCY UNKNOWN
  7. ONDANSETRON [Concomitant]
     Active Substance: ONDANSETRON
     Dosage: FREQUENCY UNKNOWN
  8. OXYCODONE HC [Concomitant]
     Dosage: FREQUENCY UNKNOWN

REACTIONS (7)
  - Urinary tract infection [Unknown]
  - Muscle spasms [Recovering/Resolving]
  - Hypophagia [Recovering/Resolving]
  - Mental impairment [Unknown]
  - Aggression [Unknown]
  - Pain [Unknown]
  - Malignant neoplasm progression [Unknown]

NARRATIVE: CASE EVENT DATE: 20231001
